FAERS Safety Report 14948576 (Version 2)
Quarter: 2018Q2

REPORT INFORMATION
  Report Type: Report from Study
  Country: IT (occurrence: IT)
  Receive Date: 20180529
  Receipt Date: 20180629
  Transmission Date: 20180711
  Serious: Yes (Hospitalization)
  Sender: FDA-Public Use
  Company Number: IT-PFIZER INC-2018213939

PATIENT
  Age: 17 Year
  Sex: Female

DRUGS (3)
  1. KETOPROFEN. [Suspect]
     Active Substance: KETOPROFEN
     Dosage: UNK
     Route: 048
     Dates: start: 20180207, end: 20180207
  2. PREGABALIN. [Suspect]
     Active Substance: PREGABALIN
     Dosage: UNK
     Route: 048
     Dates: start: 20180207, end: 20180207
  3. ACARBOSE. [Suspect]
     Active Substance: ACARBOSE
     Dosage: UNK
     Route: 048
     Dates: start: 20180207, end: 20180207

REACTIONS (3)
  - Suicide attempt [Unknown]
  - Overdose [Unknown]
  - Intentional self-injury [Unknown]

NARRATIVE: CASE EVENT DATE: 20180207
